FAERS Safety Report 5146432-8 (Version None)
Quarter: 2006Q4

REPORT INFORMATION
  Report Type: 
  Country: None (occurrence: None)
  Receive Date: 20061102
  Receipt Date: 20061023
  Transmission Date: 20070319
  Serious: Yes (Other)
  Sender: FDA-Public Use
  Company Number: 2006119262

PATIENT
  Sex: Female

DRUGS (7)
  1. XALATAN [Suspect]
     Indication: GLAUCOMA
     Dosage: (BEDTIME)
     Dates: start: 20050901, end: 20061001
  2. ALLOPURINOL [Concomitant]
  3. LOPID [Concomitant]
  4. METHENAMINE (METHENAMINE) [Concomitant]
  5. HYDREA [Concomitant]
  6. COZAAR [Concomitant]
  7. ASPIRIN [Concomitant]

REACTIONS (3)
  - DYSPHAGIA [None]
  - ORAL SOFT TISSUE DISORDER [None]
  - TONGUE DISORDER [None]
